FAERS Safety Report 7467921-7 (Version None)
Quarter: 2011Q2

REPORT INFORMATION
  Report Type: 
  Country: None (occurrence: None)
  Receive Date: 20110509
  Receipt Date: 20110218
  Transmission Date: 20111010
  Serious: No
  Sender: FDA-Public Use
  Company Number: US-ALEXION-A201100220

PATIENT
  Sex: Female

DRUGS (8)
  1. ARIMIDEX [Concomitant]
     Indication: HORMONE REPLACEMENT THERAPY
     Dosage: 1 MG, QD
     Route: 048
  2. CENTRUM                            /00554501/ [Concomitant]
     Indication: VITAMIN SUPPLEMENTATION
     Dosage: UNK
     Route: 048
  3. SOLIRIS [Suspect]
     Indication: PAROXYSMAL NOCTURNAL HAEMOGLOBINURIA
     Dosage: 600 MG, QW
     Route: 042
     Dates: start: 20090310
  4. TRANXENE [Concomitant]
     Indication: ANXIETY
     Dosage: 7.5 MG, TID PRN
     Route: 048
  5. LIPITOR [Concomitant]
     Indication: BLOOD CHOLESTEROL INCREASED
     Dosage: 40 MG, Q2W
     Route: 048
  6. ARIMIDEX [Concomitant]
     Indication: NEOPLASM MALIGNANT
  7. FOLIC ACID [Concomitant]
     Indication: ANAEMIA
     Dosage: 1 MG, QD
     Route: 048
  8. SOLIRIS [Suspect]
     Dosage: 900 MG, Q2W
     Route: 042
     Dates: start: 20090407

REACTIONS (2)
  - DYSPEPSIA [None]
  - BLOOD IRON INCREASED [None]
